FAERS Safety Report 9383795 (Version 2)
Quarter: 2013Q3

REPORT INFORMATION
  Report Type: Spontaneous
  Country: US (occurrence: US)
  Receive Date: 20130704
  Receipt Date: 20130801
  Transmission Date: 20140515
  Serious: No
  Sender: FDA-Public Use
  Company Number: US-B.I. PHARMACEUTICALS,INC./RIDGEFIELD-2013-BI-18791BP

PATIENT
  Age: 75 Year
  Sex: Female
  Weight: 88 kg

DRUGS (11)
  1. PRADAXA [Suspect]
     Indication: CEREBROVASCULAR ACCIDENT PROPHYLAXIS
     Dosage: 300 MG
     Route: 048
     Dates: start: 20130501
  2. PRADAXA [Suspect]
     Indication: ATRIAL FIBRILLATION
  3. ISOSORBIDE [Concomitant]
     Indication: CARDIAC FAILURE
  4. FUROSEMIDE [Concomitant]
     Indication: CARDIAC FAILURE
  5. LISINOPRIL [Concomitant]
     Indication: HYPERTENSION
  6. POTASSIUM [Concomitant]
  7. DIGOXIN [Concomitant]
     Indication: CARDIAC FAILURE
  8. ASPIRIN [Concomitant]
     Indication: CARDIAC DISORDER
  9. PLAVIX [Concomitant]
     Indication: CARDIAC DISORDER
  10. METOPROLOL [Concomitant]
     Indication: ATRIAL FIBRILLATION
  11. LOVASTATIN [Concomitant]
     Indication: BLOOD CHOLESTEROL INCREASED

REACTIONS (1)
  - Gout [Not Recovered/Not Resolved]
